FAERS Safety Report 10888904 (Version 4)
Quarter: 2015Q2

REPORT INFORMATION
  Report Type: Report from Study
  Country: FR (occurrence: FR)
  Receive Date: 20150305
  Receipt Date: 20150420
  Transmission Date: 20150821
  Serious: Yes (Hospitalization, Disabling, Other)
  Sender: FDA-Public Use
  Company Number: FR-GILEAD-2015-0139882

PATIENT
  Age: 52 Year
  Sex: Male
  Weight: 61 kg

DRUGS (11)
  1. AVLOCARDYL                         /00030001/ [Concomitant]
     Active Substance: PROPRANOLOL HYDROCHLORIDE
     Dosage: 20 MG, QD
     Route: 048
     Dates: end: 20140317
  2. KAYEXALATE [Concomitant]
     Active Substance: SODIUM POLYSTYRENE SULFONATE
  3. INEXIUM                            /01479302/ [Concomitant]
     Active Substance: ESOMEPRAZOLE MAGNESIUM
     Dosage: 20 MG, QD
  4. AERIUS [Concomitant]
     Active Substance: DESLORATADINE
  5. DUPHALAC [Concomitant]
     Active Substance: LACTULOSE
  6. SOFOSBUVIR [Suspect]
     Active Substance: SOFOSBUVIR
     Indication: HEPATITIS C
     Dosage: 400 MG, QD
     Route: 048
     Dates: start: 20140307, end: 20140826
  7. ALDACTONE [Concomitant]
     Active Substance: SPIRONOLACTONE
     Dosage: 75 MG, QD
  8. LASILIX                            /00032601/ [Concomitant]
     Active Substance: FUROSEMIDE
     Dosage: 40 MG, QD
  9. PRINCI-B                           /00499701/ [Concomitant]
     Dosage: UNK UNK, TID
  10. DACLATASVIR [Suspect]
     Active Substance: DACLATASVIR
     Indication: HEPATITIS C
     Dosage: 60 MG, QD
     Route: 048
     Dates: start: 20140307, end: 20140826
  11. AVLOCARDYL                         /00030001/ [Concomitant]
     Active Substance: PROPRANOLOL HYDROCHLORIDE
     Dosage: 40 MG, QD
     Route: 048

REACTIONS (2)
  - Bradycardia [Recovered/Resolved with Sequelae]
  - Sinoatrial block [Recovered/Resolved with Sequelae]

NARRATIVE: CASE EVENT DATE: 20140317
